FAERS Safety Report 16413341 (Version 1)
Quarter: 2019Q2

REPORT INFORMATION
  Report Type: Report from Study
  Country: US (occurrence: US)
  Receive Date: 20190611
  Receipt Date: 20190611
  Transmission Date: 20190711
  Serious: No
  Sender: FDA-Public Use
  Company Number: US-ROCHE-2006177

PATIENT
  Age: 48 Year
  Sex: Female
  Weight: 70.37 kg

DRUGS (7)
  1. TYLENOL [Concomitant]
     Active Substance: ACETAMINOPHEN
     Route: 048
     Dates: start: 20190328
  2. SOLU-MEDROL [Concomitant]
     Active Substance: METHYLPREDNISOLONE SODIUM SUCCINATE
     Route: 042
     Dates: start: 20190328
  3. PEPCID [Concomitant]
     Active Substance: FAMOTIDINE
     Route: 042
     Dates: start: 20190328, end: 20190328
  4. OCREVUS [Suspect]
     Active Substance: OCRELIZUMAB
     Dosage: SECOND DOSE?DAY1 AND DAY 15
     Route: 042
     Dates: start: 20171011
  5. OCREVUS [Suspect]
     Active Substance: OCRELIZUMAB
     Dosage: 18 MONTH DOSE
     Route: 042
     Dates: start: 20190328
  6. BENADRYL [Concomitant]
     Active Substance: DIPHENHYDRAMINE HYDROCHLORIDE
  7. OCREVUS [Suspect]
     Active Substance: OCRELIZUMAB
     Indication: RELAPSING MULTIPLE SCLEROSIS
     Dosage: 1ST 1/2 OF 1ST DOSE
     Route: 042
     Dates: start: 20170928

REACTIONS (9)
  - Fatigue [Recovering/Resolving]
  - Weight fluctuation [Unknown]
  - Urinary tract infection [Unknown]
  - Feeling hot [Recovered/Resolved]
  - Stress [Unknown]
  - Pruritus [Recovering/Resolving]
  - Headache [Recovered/Resolved]
  - Dysarthria [Unknown]
  - Ear pruritus [Recovered/Resolved]

NARRATIVE: CASE EVENT DATE: 20170928
